FAERS Safety Report 5069692-0 (Version None)
Quarter: 2006Q3

REPORT INFORMATION
  Report Type: 
  Country: None (occurrence: None)
  Receive Date: 20060802
  Receipt Date: 20060802
  Transmission Date: 20061208
  Serious: Yes (Hospitalization)
  Sender: FDA-Public Use
  Company Number: None

PATIENT
  Age: 32 Year
  Sex: Female
  Weight: 120.5 kg

DRUGS (1)
  1. WELLBUTRIN [Suspect]
     Dosage: 300 MG    DAILY    PO
     Route: 048
     Dates: start: 20060707, end: 20060707

REACTIONS (2)
  - TENDERNESS [None]
  - VISION BLURRED [None]
